FAERS Safety Report 4877274-6 (Version None)
Quarter: 2006Q1

REPORT INFORMATION
  Report Type: 
  Country: None (occurrence: None)
  Receive Date: 20060106
  Receipt Date: 20051222
  Transmission Date: 20060701
  Serious: Yes (Hospitalization)
  Sender: FDA-Public Use
  Company Number: AZAAU200500444

PATIENT
  Age: 63 Year
  Sex: Male
  Weight: 71.4 kg

DRUGS (15)
  1. AZACITIDINE (AZACITIDINE) (INJECTION) [Suspect]
     Indication: MYELODYSPLASTIC SYNDROME
     Dosage: 37.5 MG/M2 (71 MG, DAILY X 7 DAYS), SUBCUTANEOUS
     Route: 058
     Dates: start: 20051118, end: 20051124
  2. FOLIC ACID [Concomitant]
  3. HYDROXOCOBALAMIN (HYDROXOCOBALAMIN) [Concomitant]
  4. DEHYDROEPIANDROSTERONE (PRASTERONE) [Concomitant]
  5. MOCLOBEMIDE (MOCLOBEMIDE) [Concomitant]
  6. AMITRIPTYLINE HYDROCHLORIDE [Concomitant]
  7. CALCIUM CARBONATE (CALCIUM CARBONATE) [Concomitant]
  8. MORPHINE SULFATE [Concomitant]
  9. ALPRAZOLAM [Concomitant]
  10. FLUCONAZOLE [Concomitant]
  11. PREDNISOLONE [Concomitant]
  12. INSULIN NEUTRAL (INSULIN) [Concomitant]
  13. METFORMIN HCL [Concomitant]
  14. AUGMENTIN DUO (CLAVULIN) (TABLETS) [Concomitant]
  15. ONDANSETRON [Concomitant]

REACTIONS (10)
  - ACUTE FEBRILE NEUTROPHILIC DERMATOSIS [None]
  - AGITATION [None]
  - BLISTER [None]
  - BRONCHOPNEUMONIA [None]
  - CANDIDIASIS [None]
  - CONFUSIONAL STATE [None]
  - HYPONATRAEMIA [None]
  - IMMUNOSUPPRESSION [None]
  - LOBAR PNEUMONIA [None]
  - SKIN LESION [None]
